FAERS Safety Report 6382404-3 (Version None)
Quarter: 2009Q3

REPORT INFORMATION
  Report Type: 
  Country: None (occurrence: None)
  Receive Date: 20090928
  Receipt Date: 20090928
  Transmission Date: 20100115
  Serious: Yes (Death, Hospitalization)
  Sender: FDA-Public Use
  Company Number: None

PATIENT
  Sex: Male

DRUGS (7)
  1. REVLIMID [Suspect]
     Indication: MULTIPLE MYELOMA
     Dosage: REVLIMID 10MG DAILY 21D/28D ORAL
     Route: 048
  2. DEXAMETHASONE [Concomitant]
  3. OMEPRAZOLE [Concomitant]
  4. LOVASTATIN [Concomitant]
  5. LISINOPRIL [Concomitant]
  6. DILTIAZEM [Concomitant]
  7. THEOPHYLLINE [Concomitant]

REACTIONS (2)
  - PNEUMONIA [None]
  - RENAL FAILURE ACUTE [None]
